FAERS Safety Report 5054016-5 (Version None)
Quarter: 2006Q3

REPORT INFORMATION
  Report Type: 
  Country: None (occurrence: None)
  Receive Date: 20060713
  Receipt Date: 20060630
  Transmission Date: 20061208
  Serious: Yes (Disabling)
  Sender: FDA-Public Use
  Company Number: 33201

PATIENT
  Age: 70 Year
  Sex: Male

DRUGS (1)
  1. TRAVOPROST 0.004% SOLUTION [Suspect]
     Indication: OCULAR HYPERTENSION
     Dosage: 1 GTT HS, OPHT
     Route: 047
     Dates: start: 20051021, end: 20051024

REACTIONS (7)
  - CORNEAL GRAFT REJECTION [None]
  - DRUG INEFFECTIVE [None]
  - EYE INFLAMMATION [None]
  - EYE PAIN [None]
  - INTRAOCULAR PRESSURE INCREASED [None]
  - VISION BLURRED [None]
  - VISUAL ACUITY REDUCED [None]
